FAERS Safety Report 20538308 (Version 1)
Quarter: 2022Q1

REPORT INFORMATION
  Report Type: Spontaneous
  Country: DE (occurrence: DE)
  Receive Date: 20220302
  Receipt Date: 20220302
  Transmission Date: 20220424
  Serious: Yes (Hospitalization)
  Sender: FDA-Public Use
  Company Number: DE-ADRED-07036-01

PATIENT
  Age: 75 Year
  Sex: Male
  Weight: 111 kg

DRUGS (10)
  1. RISPERDAL [Suspect]
     Active Substance: RISPERIDONE
     Indication: Product used for unknown indication
     Dosage: 0.5 MG, 1-0-1-0
     Route: 065
  2. ATORVASTATIN [Concomitant]
     Active Substance: ATORVASTATIN
     Dosage: 40 MG, 0-0-1-0
  3. INSULIN GLARGINE [Concomitant]
     Active Substance: INSULIN GLARGINE
  4. POTASSIUM CHLORIDE [Concomitant]
     Active Substance: POTASSIUM CHLORIDE
     Dosage: SCHEMA
  5. ASPIRIN [Concomitant]
     Active Substance: ASPIRIN
  6. PANTOPRAZOLE [Concomitant]
     Active Substance: PANTOPRAZOLE
  7. BISOPROLOL [Concomitant]
     Active Substance: BISOPROLOL
     Dosage: 600 MG, 2-0-2-0
  8. TORSEMIDE [Concomitant]
     Active Substance: TORSEMIDE
     Dosage: 100 MG, 1-0-0-0
  9. INSULIN ASPART [Concomitant]
     Active Substance: INSULIN ASPART
     Dosage: 40 MG, 1-0-0-0
  10. METFORMIN\SITAGLIPTIN [Concomitant]
     Active Substance: METFORMIN\SITAGLIPTIN

REACTIONS (13)
  - Oedema peripheral [Recovering/Resolving]
  - Dyspnoea [Recovering/Resolving]
  - Anaemia [Recovering/Resolving]
  - General physical health deterioration [Recovering/Resolving]
  - Wheezing [Recovering/Resolving]
  - Hyperglycaemia [Recovering/Resolving]
  - Electrocardiogram abnormal [Recovering/Resolving]
  - Jaundice [Recovering/Resolving]
  - Pyrexia [Recovering/Resolving]
  - Weight increased [Recovering/Resolving]
  - Tachypnoea [Recovering/Resolving]
  - Renal impairment [Recovering/Resolving]
  - Systemic infection [Recovering/Resolving]
